FAERS Safety Report 6815289-9 (Version None)
Quarter: 2010Q3

REPORT INFORMATION
  Report Type: 
  Country: None (occurrence: None)
  Receive Date: 20100702
  Receipt Date: 20100622
  Transmission Date: 20110219
  Serious: Yes (Hospitalization, Other)
  Sender: FDA-Public Use
  Company Number: FI-BRISTOL-MYERS SQUIBB COMPANY-14658686

PATIENT
  Age: 73 Year
  Sex: Female

DRUGS (9)
  1. SPRYCEL [Suspect]
     Indication: ACUTE LYMPHOCYTIC LEUKAEMIA
     Dosage: RESTARTED WITH 70MG DAILY AND 100MG
     Route: 048
     Dates: start: 20090320, end: 20090324
  2. DOXORUBICIN HCL [Interacting]
     Dates: start: 20090323
  3. CYCLOPHOSPHAMIDE [Interacting]
     Dosage: TAKEN EVERY 12TH DATE
     Route: 042
  4. VINCRISTINE [Interacting]
     Route: 042
     Dates: start: 20090323
  5. DEXAMETHASONE [Interacting]
     Dates: start: 20090320, end: 20090323
  6. ZOFRAN [Interacting]
     Dosage: ALSO ON 30MAR2009
     Route: 048
     Dates: start: 20090320, end: 20090323
  7. NEXIUM [Interacting]
     Dosage: 40MG *1 20MAR09 TO 23MAR09 + 30MAR09 TO 2APR09
     Route: 048
     Dates: start: 20090320, end: 20090402
  8. SIMVASTATIN [Concomitant]
     Dosage: 10MG*1
  9. ASPIRIN [Concomitant]
     Dosage: 100MG*1
     Dates: end: 20090318

REACTIONS (6)
  - ATRIAL FIBRILLATION [None]
  - DRUG INTERACTION [None]
  - PNEUMOCYSTIS JIROVECI PNEUMONIA [None]
  - PULMONARY OEDEMA [None]
  - SEPSIS [None]
  - TUMOUR LYSIS SYNDROME [None]
